FAERS Safety Report 25350983 (Version 2)
Quarter: 2025Q2

REPORT INFORMATION
  Report Type: Spontaneous
  Country: JP (occurrence: JP)
  Receive Date: 20250523
  Receipt Date: 20250626
  Transmission Date: 20250717
  Serious: Yes (Death, Hospitalization)
  Sender: JOHNSON AND JOHNSON
  Company Number: JP-NShinyaku-EVA20250690001001307081

PATIENT
  Age: 9 Decade
  Sex: Female

DRUGS (2)
  1. UPTRAVI [Suspect]
     Active Substance: SELEXIPAG
     Indication: Pulmonary hypertension
     Dosage: THERAPY START DATE: 09-MAY-2025
     Route: 048
     Dates: end: 202505
  2. ARGIPRESSIN [Suspect]
     Active Substance: ARGIPRESSIN
     Indication: Right ventricular failure
     Route: 065
     Dates: end: 2025

REACTIONS (1)
  - Right ventricular failure [Fatal]
